FAERS Safety Report 8564895-2 (Version None)
Quarter: 2012Q3

REPORT INFORMATION
  Report Type: 
  Country: None (occurrence: None)
  Receive Date: 20120723
  Receipt Date: 20120706
  Transmission Date: 20120928
  Serious: Yes (Death, Hospitalization)
  Sender: FDA-Public Use
  Company Number: GGEL20120700863

PATIENT
  Age: 19 Year
  Sex: Male

DRUGS (1)
  1. LAMOTRIGINE [Suspect]
     Indication: PRODUCT USED FOR UNKNOWN INDICATION
     Dosage: 4 GM, 1 IN 1 ONCE

REACTIONS (20)
  - TREMOR [None]
  - GRAND MAL CONVULSION [None]
  - SINUS TACHYCARDIA [None]
  - RHABDOMYOLYSIS [None]
  - ASPIRATION [None]
  - BLOOD GLUCOSE DECREASED [None]
  - PULSE ABSENT [None]
  - HAEMODIALYSIS [None]
  - ENCEPHALOPATHY [None]
  - CARDIOTOXICITY [None]
  - ELECTROCARDIOGRAM QRS COMPLEX PROLONGED [None]
  - RENAL FAILURE ACUTE [None]
  - ATRIOVENTRICULAR BLOCK COMPLETE [None]
  - PALLOR [None]
  - BLOOD POTASSIUM DECREASED [None]
  - PROTEIN TOTAL INCREASED [None]
  - STAPHYLOCOCCUS TEST POSITIVE [None]
  - KLEBSIELLA TEST POSITIVE [None]
  - TOXICITY TO VARIOUS AGENTS [None]
  - INTENTIONAL OVERDOSE [None]
